FAERS Safety Report 5290723-7 (Version None)
Quarter: 2007Q2

REPORT INFORMATION
  Report Type: 
  Country: None (occurrence: None)
  Receive Date: 20070409
  Receipt Date: 20070402
  Transmission Date: 20071010
  Serious: Yes (Death)
  Sender: FDA-Public Use
  Company Number: PHBS2007IT05911

PATIENT
  Age: 55 Year
  Sex: Female

DRUGS (1)
  1. GLEEVEC [Suspect]
     Indication: HEPATIC LESION
     Dosage: 400 MG/D
     Route: 048
     Dates: start: 20060320, end: 20070225

REACTIONS (1)
  - SHOCK HAEMORRHAGIC [None]
